FAERS Safety Report 4635082-5 (Version None)
Quarter: 2005Q2

REPORT INFORMATION
  Report Type: 
  Country: None (occurrence: None)
  Receive Date: 20050414
  Receipt Date: 20050406
  Transmission Date: 20051028
  Serious: Yes (Other)
  Sender: FDA-Public Use
  Company Number: JP-ROCHE-401463

PATIENT
  Age: 79 Year
  Sex: Female

DRUGS (2)
  1. TAMIFLU [Suspect]
     Route: 048
     Dates: start: 20050329, end: 20050401
  2. BAKUMONDO-TO [Concomitant]
     Route: 048
     Dates: start: 20050329, end: 20050401

REACTIONS (1)
  - BONE MARROW DEPRESSION [None]
